FAERS Safety Report 8277829-5 (Version None)
Quarter: 2012Q2

REPORT INFORMATION
  Report Type: 
  Country: None (occurrence: None)
  Receive Date: 20120412
  Receipt Date: 20120411
  Transmission Date: 20120825
  Serious: No
  Sender: FDA-Public Use
  Company Number: US-TEVA-332813USA

PATIENT
  Sex: Female

DRUGS (1)
  1. COPAXONE [Suspect]
     Indication: MULTIPLE SCLEROSIS
     Dosage: 20 MILLIGRAM;
     Route: 058
     Dates: start: 20120101, end: 20120401

REACTIONS (6)
  - MYALGIA [None]
  - MUSCLE SPASMS [None]
  - RENAL PAIN [None]
  - BACK PAIN [None]
  - HEPATIC PAIN [None]
  - INJECTION SITE URTICARIA [None]
